FAERS Safety Report 7534607-X (Version None)
Quarter: 2011Q2

REPORT INFORMATION
  Report Type: 
  Country: None (occurrence: None)
  Receive Date: 20110609
  Receipt Date: 20100507
  Transmission Date: 20111010
  Serious: Yes (Hospitalization, Other)
  Sender: FDA-Public Use
  Company Number: PHHY2009JP02735

PATIENT
  Sex: Female

DRUGS (9)
  1. MENIACE [Concomitant]
     Dosage: 18 MG
     Route: 048
     Dates: start: 20070920, end: 20071030
  2. KETOPROFEN [Concomitant]
     Route: 062
     Dates: start: 20071106
  3. GASLON [Concomitant]
     Dosage: 4 MG
     Route: 062
     Dates: start: 20071109, end: 20071122
  4. GASMOTIN [Concomitant]
     Dosage: 15 MG
     Route: 048
     Dates: start: 20080828, end: 20080929
  5. PROTECADIN [Concomitant]
     Dosage: 10 MG
     Route: 048
     Dates: start: 20071109, end: 20071122
  6. ADETPHOS [Concomitant]
     Dosage: 30 MG
     Route: 048
     Dates: start: 20090225
  7. DEPAS [Concomitant]
     Dosage: 1.5 MG
     Route: 048
     Dates: start: 20071112
  8. VALSARTAN [Suspect]
     Indication: HYPERTENSION
     Dosage: 40 MG, ONCE DAILY
     Route: 048
     Dates: start: 20071004
  9. BEZATOL - SLOW RELEASE [Concomitant]
     Dosage: 400 MG
     Route: 048
     Dates: start: 20080911, end: 20081127

REACTIONS (8)
  - BLOOD CREATININE INCREASED [None]
  - DIABETES MELLITUS [None]
  - HYPERLIPIDAEMIA [None]
  - ANXIETY [None]
  - CHOLECYSTITIS ACUTE [None]
  - ARTHRITIS GONOCOCCAL [None]
  - GASTRITIS [None]
  - BLOOD POTASSIUM DECREASED [None]
